FAERS Safety Report 5907135-2 (Version None)
Quarter: 2008Q4

REPORT INFORMATION
  Report Type: 
  Country: None (occurrence: None)
  Receive Date: 20081003
  Receipt Date: 20080923
  Transmission Date: 20090506
  Serious: Yes (Other)
  Sender: FDA-Public Use
  Company Number: US-BAYER-US-2007-029365

PATIENT
  Sex: Female

DRUGS (1)
  1. MAGNEVIST [Suspect]
     Indication: NUCLEAR MAGNETIC RESONANCE IMAGING
     Dosage: TOTAL DAILY DOSE: 40 ML  UNIT DOSE: 40 ML
     Route: 042
     Dates: start: 20030716, end: 20030716

REACTIONS (3)
  - NEPHROGENIC SYSTEMIC FIBROSIS [None]
  - RASH [None]
  - SKIN TIGHTNESS [None]
